FAERS Safety Report 17038952 (Version 2)
Quarter: 2023Q1

REPORT INFORMATION
  Report Type: Report from Study
  Country: JP (occurrence: JP)
  Receive Date: 20191115
  Receipt Date: 20230130
  Transmission Date: 20230417
  Serious: Yes (Death)
  Sender: FDA-Public Use
  Company Number: JP-BAUSCH-BL-2019-061337

PATIENT
  Age: 61 Year
  Sex: Female
  Weight: 43 kg

DRUGS (6)
  1. TETRABENAZINE [Suspect]
     Active Substance: TETRABENAZINE
     Indication: Huntington^s disease
     Route: 048
     Dates: start: 20160425
  2. RISPERDAL [Concomitant]
     Active Substance: RISPERIDONE
     Indication: Huntington^s disease
     Route: 048
     Dates: start: 20160425
  3. HALOPERIDOL [Concomitant]
     Active Substance: HALOPERIDOL
     Indication: Huntington^s disease
     Route: 048
     Dates: start: 20160425
  4. ALPRAZOLAM [Concomitant]
     Active Substance: ALPRAZOLAM
     Indication: Huntington^s disease
     Dosage: CONSTAN
     Route: 048
     Dates: start: 20160425
  5. SULPIRIDE [Concomitant]
     Active Substance: SULPIRIDE
     Indication: Huntington^s disease
     Route: 048
     Dates: start: 20160425
  6. DOPAMINE HYDROCHLORIDE [Concomitant]
     Active Substance: DOPAMINE HYDROCHLORIDE
     Indication: Product used for unknown indication
     Dosage: 10 A
     Route: 065
     Dates: start: 20181213, end: 20181213

REACTIONS (1)
  - Pneumonia [Fatal]

NARRATIVE: CASE EVENT DATE: 20181213
